FAERS Safety Report 8924799 (Version 1)
Quarter: 2012Q4

REPORT INFORMATION
  Report Type: 
  Country: CO (occurrence: CO)
  Receive Date: 20121126
  Receipt Date: 20121126
  Transmission Date: 20130627
  Serious: Yes (Disabling)
  Sender: FDA-Public Use
  Company Number: CO-PFIZER INC-2012293970

PATIENT
  Age: 59 Year
  Sex: Female

DRUGS (2)
  1. XANAX [Suspect]
     Dosage: UNK
  2. PRISTIQ [Suspect]
     Dosage: 50 mg, UNK
     Dates: end: 201208

REACTIONS (1)
  - Gait disturbance [Unknown]
